FAERS Safety Report 17623346 (Version 1)
Quarter: 2020Q2

REPORT INFORMATION
  Report Type: Spontaneous
  Country: CN (occurrence: CN)
  Receive Date: 20200403
  Receipt Date: 20200403
  Transmission Date: 20200713
  Serious: Yes (Other)
  Sender: FDA-Public Use
  Company Number: CN-JNJFOC-20200344438

PATIENT
  Age: 4 Day
  Sex: Male
  Weight: .98 kg

DRUGS (1)
  1. CHILDRENS MOTRIN [Suspect]
     Active Substance: IBUPROFEN
     Indication: PATENT DUCTUS ARTERIOSUS
     Dosage: THE PATIENT WAS GIVEN IBUPROFEN SUSPENSION 0.47ML ONCE ORALLY AT 15:00 ON 18MAR2020 AND  0.23ML ONCE
     Route: 048
     Dates: start: 20200318, end: 20200319

REACTIONS (1)
  - Oliguria [Recovered/Resolved]

NARRATIVE: CASE EVENT DATE: 202003
